FAERS Safety Report 10785664 (Version 2)
Quarter: 2015Q1

REPORT INFORMATION
  Report Type: Spontaneous
  Country: US (occurrence: US)
  Receive Date: 20150211
  Receipt Date: 20150218
  Transmission Date: 20150721
  Serious: Yes (Other)
  Sender: FDA-Public Use
  Company Number: US-PFIZER INC-2015054091

PATIENT
  Sex: Female

DRUGS (3)
  1. XANAX XR [Suspect]
     Active Substance: ALPRAZOLAM
     Dosage: 1 MG, UNK
  2. LIDODERM [Suspect]
     Active Substance: LIDOCAINE
     Indication: PAIN
     Dosage: UNK
     Route: 062
  3. NOVOCAINE [Suspect]
     Active Substance: PROCAINE
     Dosage: UNK
     Route: 004

REACTIONS (2)
  - Loss of consciousness [Unknown]
  - Road traffic accident [Unknown]
